FAERS Safety Report 14189576 (Version 3)
Quarter: 2018Q1

REPORT INFORMATION
  Report Type: Report from Study
  Country: None (occurrence: DE)
  Receive Date: 20171115
  Receipt Date: 20180214
  Transmission Date: 20180508
  Serious: Yes (Hospitalization, Other)
  Sender: FDA-Public Use
  Company Number: DE-ABBVIE-17K-062-2158630-00

PATIENT
  Age: 69 Year
  Sex: Male

DRUGS (6)
  1. CLOBETASOL [Concomitant]
     Active Substance: CLOBETASOL
     Indication: PSORIASIS
  2. IBUPROFEN. [Concomitant]
     Active Substance: IBUPROFEN
     Indication: PRODUCT USED FOR UNKNOWN INDICATION
  3. STELARA [Suspect]
     Active Substance: USTEKINUMAB
     Indication: PRODUCT USED FOR UNKNOWN INDICATION
     Route: 065
     Dates: start: 201710, end: 201711
  4. HUMIRA [Suspect]
     Active Substance: ADALIMUMAB
     Indication: PSORIASIS
     Route: 058
     Dates: start: 201703, end: 20170802
  5. INFECTOCORTISEPT [Concomitant]
     Indication: PSORIASIS
  6. HUMIRA [Suspect]
     Active Substance: ADALIMUMAB
     Indication: PSORIATIC ARTHROPATHY

REACTIONS (20)
  - Ear swelling [Recovered/Resolved]
  - Psoriasis [Recovered/Resolved]
  - Hyperkeratosis [Unknown]
  - Fluid retention [Recovered/Resolved]
  - Dry mouth [Unknown]
  - Arthropathy [Recovering/Resolving]
  - Dermatitis exfoliative generalised [Unknown]
  - Hypoacusis [Recovered/Resolved]
  - Cheilitis [Unknown]
  - Dermatitis [Unknown]
  - Hyperkeratosis [Unknown]
  - Ocular hyperaemia [Unknown]
  - Blister [Unknown]
  - Skin erosion [Unknown]
  - Blood disorder [Unknown]
  - Skin disorder [Unknown]
  - Drug eruption [Unknown]
  - Lichenification [Unknown]
  - Telangiectasia [Unknown]
  - Skin exfoliation [Unknown]

NARRATIVE: CASE EVENT DATE: 2017
